FAERS Safety Report 12523821 (Version 2)
Quarter: 2016Q3

REPORT INFORMATION
  Report Type: Spontaneous
  Country: IT (occurrence: IT)
  Receive Date: 20160704
  Receipt Date: 20160719
  Transmission Date: 20161109
  Serious: Yes (Life-Threatening, Hospitalization, Other)
  Sender: FDA-Public Use
  Company Number: IT-BRISTOL-MYERS SQUIBB COMPANY-BMS-2016-051093

PATIENT
  Sex: Female
  Weight: 65 kg

DRUGS (2)
  1. METFORMIN HYDROCHLORIDE. [Suspect]
     Active Substance: METFORMIN HYDROCHLORIDE
     Indication: DIABETES MELLITUS
     Dosage: UNK
     Route: 065
  2. RAMIPRIL. [Concomitant]
     Active Substance: RAMIPRIL
     Indication: PRODUCT USED FOR UNKNOWN INDICATION
     Route: 065

REACTIONS (11)
  - Renal failure [Unknown]
  - Metabolic acidosis [Unknown]
  - Hypoxic-ischaemic encephalopathy [Unknown]
  - Lactic acidosis [Recovered/Resolved with Sequelae]
  - Multiple organ dysfunction syndrome [Unknown]
  - Septic shock [Unknown]
  - Toxicity to various agents [Unknown]
  - Dialysis [Unknown]
  - Drug abuse [Unknown]
  - Cardiac arrest [Unknown]
  - Endotracheal intubation [Unknown]

NARRATIVE: CASE EVENT DATE: 20160503
